FAERS Safety Report 13622218 (Version 1)
Quarter: 2017Q2

REPORT INFORMATION
  Report Type: Spontaneous
  Country: US (occurrence: US)
  Receive Date: 20170607
  Receipt Date: 20170607
  Transmission Date: 20170830
  Serious: No
  Sender: FDA-Public Use
  Company Number: US-ROCHE-1925943

PATIENT
  Sex: Female

DRUGS (1)
  1. XELODA [Suspect]
     Active Substance: CAPECITABINE
     Indication: NEOPLASM MALIGNANT
     Dosage: 1500 MG TWICE A DAY ON DAYS 1-7 AND 15-21 FOR EVERY 28 DAYS CYCLE
     Route: 048
     Dates: start: 20170405

REACTIONS (2)
  - Vomiting [Unknown]
  - Headache [Unknown]
